FAERS Safety Report 21949570 (Version 2)
Quarter: 2023Q1

REPORT INFORMATION
  Report Type: Spontaneous
  Country: BR (occurrence: BR)
  Receive Date: 20230203
  Receipt Date: 20230218
  Transmission Date: 20230418
  Serious: Yes (Other)
  Sender: FDA-Public Use
  Company Number: BR-TAKEDA-2023TUS011258

PATIENT
  Sex: Male

DRUGS (4)
  1. LISDEXAMFETAMINE DIMESYLATE [Suspect]
     Active Substance: LISDEXAMFETAMINE DIMESYLATE
     Indication: Attention deficit hyperactivity disorder
     Dosage: 1 INTERNATIONAL UNIT, QD
     Route: 048
  2. VITAMIN C [Concomitant]
     Active Substance: ASCORBIC ACID
     Dosage: UNK
     Route: 065
  3. FLUOXETINE [Concomitant]
     Active Substance: FLUOXETINE HYDROCHLORIDE
     Dosage: UNK, QD
     Route: 065
  4. LAMOTRIGINE [Concomitant]
     Active Substance: LAMOTRIGINE
     Dosage: UNK, QD
     Route: 065

REACTIONS (6)
  - Autism spectrum disorder [Unknown]
  - Drug dependence [Unknown]
  - Psychological trauma [Unknown]
  - Depression [Unknown]
  - Drug ineffective [Unknown]
  - Product quality issue [Unknown]
